FAERS Safety Report 16337521 (Version 1)
Quarter: 2019Q2

REPORT INFORMATION
  Report Type: Spontaneous
  Country: US (occurrence: US)
  Receive Date: 20190416
  Receipt Date: 20190416
  Transmission Date: 20190711
  Serious: No
  Sender: FDA-Public Use
  Company Number: None

PATIENT
  Sex: Female

DRUGS (1)
  1. ONDANSETRON HCL SDV 2ML [Suspect]
     Active Substance: ONDANSETRON HYDROCHLORIDE
     Indication: MUCOPOLYSACCHARIDOSIS
     Route: 042
     Dates: start: 20181108

REACTIONS (1)
  - Product label confusion [None]
